FAERS Safety Report 7504446-4 (Version None)
Quarter: 2011Q2

REPORT INFORMATION
  Report Type: 
  Country: None (occurrence: None)
  Receive Date: 20110525
  Receipt Date: 20110511
  Transmission Date: 20111010
  Serious: Yes (Hospitalization)
  Sender: FDA-Public Use
  Company Number: JP-GENENTECH-319213

PATIENT
  Sex: Female

DRUGS (37)
  1. NADIFLOXACIN [Concomitant]
     Indication: PRODUCT USED FOR UNKNOWN INDICATION
  2. SENNOSIDE [Concomitant]
     Indication: PRODUCT USED FOR UNKNOWN INDICATION
  3. GASMOTIN [Concomitant]
     Indication: PRODUCT USED FOR UNKNOWN INDICATION
  4. DEPAKENE [Concomitant]
     Indication: PRODUCT USED FOR UNKNOWN INDICATION
  5. SALOBEL [Concomitant]
     Indication: PRODUCT USED FOR UNKNOWN INDICATION
  6. FIRSTCIN [Concomitant]
     Indication: PRODUCT USED FOR UNKNOWN INDICATION
  7. ALVESCO [Concomitant]
     Indication: PRODUCT USED FOR UNKNOWN INDICATION
  8. KIPRES [Concomitant]
     Indication: PRODUCT USED FOR UNKNOWN INDICATION
  9. NIZORAL [Concomitant]
     Indication: PRODUCT USED FOR UNKNOWN INDICATION
  10. ZYRTEC [Concomitant]
     Indication: PRODUCT USED FOR UNKNOWN INDICATION
  11. ADALAT CC [Concomitant]
     Indication: PRODUCT USED FOR UNKNOWN INDICATION
  12. POTASSIUM CHLORIDE [Concomitant]
     Indication: PRODUCT USED FOR UNKNOWN INDICATION
  13. SUPROFEN [Concomitant]
     Indication: PRODUCT USED FOR UNKNOWN INDICATION
  14. XOLAIR [Suspect]
     Indication: ASTHMA
     Dosage: 225 MG, Q2W
     Route: 058
     Dates: start: 20100817, end: 20110119
  15. THEO-DUR [Concomitant]
     Indication: PRODUCT USED FOR UNKNOWN INDICATION
  16. UNIPHYL [Concomitant]
     Indication: PRODUCT USED FOR UNKNOWN INDICATION
  17. PRAMIPEXOLE DIHYDROCHLORIDE [Concomitant]
     Indication: PRODUCT USED FOR UNKNOWN INDICATION
  18. BENZALIN [Concomitant]
     Indication: PRODUCT USED FOR UNKNOWN INDICATION
  19. LEVOTOMIN [Concomitant]
     Indication: PRODUCT USED FOR UNKNOWN INDICATION
  20. CELTECT [Concomitant]
     Indication: PRODUCT USED FOR UNKNOWN INDICATION
  21. HALCION [Concomitant]
     Indication: PRODUCT USED FOR UNKNOWN INDICATION
  22. SEPAZON [Concomitant]
     Indication: PRODUCT USED FOR UNKNOWN INDICATION
  23. BONALON [Concomitant]
     Indication: PRODUCT USED FOR UNKNOWN INDICATION
  24. TULOBUTEROL [Concomitant]
     Indication: PRODUCT USED FOR UNKNOWN INDICATION
  25. RIBOFLAVIN TAB [Concomitant]
     Indication: PRODUCT USED FOR UNKNOWN INDICATION
  26. SEROQUEL [Concomitant]
     Indication: PRODUCT USED FOR UNKNOWN INDICATION
  27. MUCOSOLVAN [Concomitant]
     Indication: PRODUCT USED FOR UNKNOWN INDICATION
  28. LOXONIN [Concomitant]
     Indication: PRODUCT USED FOR UNKNOWN INDICATION
  29. DECADRON [Concomitant]
     Indication: PRODUCT USED FOR UNKNOWN INDICATION
  30. CYMBALTA [Concomitant]
     Indication: PRODUCT USED FOR UNKNOWN INDICATION
  31. RISPERDAL [Concomitant]
     Indication: PRODUCT USED FOR UNKNOWN INDICATION
  32. LASIX [Concomitant]
     Indication: PRODUCT USED FOR UNKNOWN INDICATION
  33. ZESULAN [Concomitant]
     Indication: PRODUCT USED FOR UNKNOWN INDICATION
  34. ROZEREM [Concomitant]
     Indication: PRODUCT USED FOR UNKNOWN INDICATION
  35. ABILIFY [Concomitant]
     Indication: PRODUCT USED FOR UNKNOWN INDICATION
  36. SULFAMETHOXAZOLE [Concomitant]
     Indication: PRODUCT USED FOR UNKNOWN INDICATION
  37. ACYCLOVIR [Concomitant]
     Indication: PRODUCT USED FOR UNKNOWN INDICATION

REACTIONS (5)
  - ANAPHYLACTIC REACTION [None]
  - HERPES ZOSTER [None]
  - GASTROENTERITIS [None]
  - INFLUENZA [None]
  - ASTHMA [None]
